FAERS Safety Report 6583398-8 (Version None)
Quarter: 2010Q1

REPORT INFORMATION
  Report Type: 
  Country: None (occurrence: None)
  Receive Date: 20100216
  Receipt Date: 20100208
  Transmission Date: 20100710
  Serious: Yes (Hospitalization, Other)
  Sender: FDA-Public Use
  Company Number: BR-ABBOTT-09P-020-0610834-00

PATIENT
  Sex: Male
  Weight: 60 kg

DRUGS (10)
  1. HUMIRA [Suspect]
     Indication: PSORIASIS
     Route: 058
     Dates: start: 20091101, end: 20100101
  2. HUMIRA [Suspect]
     Indication: PSORIATIC ARTHROPATHY
  3. CEPHALEXIN [Suspect]
     Indication: INFECTION
     Route: 048
     Dates: start: 20100118
  4. LOSARTAN POTASSIUM [Concomitant]
     Indication: HYPERTENSION
     Route: 048
     Dates: start: 20090901
  5. RIVOTRIL [Concomitant]
     Indication: ANXIETY
     Route: 048
     Dates: start: 20060101
  6. VASELINE [Concomitant]
     Indication: PRURITUS
     Route: 061
     Dates: start: 20091201
  7. AMILORIDE HCL AND HYDROCHLOROTHIAZIDE [Concomitant]
     Indication: DIURETIC THERAPY
     Dosage: 25MG/2.5MG
     Route: 048
     Dates: start: 20091223
  8. RANITIDINE [Concomitant]
     Indication: GASTRITIS
     Dosage: 2-3 PER DAY
     Route: 048
     Dates: start: 20091204, end: 20091215
  9. NEBACETIN [Concomitant]
     Indication: CONTUSION
     Route: 061
  10. CLONAZEPAM [Concomitant]
     Indication: ANXIETY
     Route: 048
     Dates: start: 20060101

REACTIONS (12)
  - ARTERIOSCLEROSIS [None]
  - CONVULSION [None]
  - DIARRHOEA [None]
  - DIPLOPIA [None]
  - INFECTION [None]
  - INJECTION SITE PAIN [None]
  - INSOMNIA [None]
  - PAIN [None]
  - PRURITUS [None]
  - PSORIASIS [None]
  - VISION BLURRED [None]
  - VOMITING [None]
